FAERS Safety Report 17767678 (Version 1)
Quarter: 2020Q2

REPORT INFORMATION
  Report Type: Spontaneous
  Country: SK (occurrence: SK)
  Receive Date: 20200511
  Receipt Date: 20200511
  Transmission Date: 20200714
  Serious: Yes (Hospitalization, Other)
  Sender: FDA-Public Use
  Company Number: SK-DSJP-DSE-2020-108910

PATIENT

DRUGS (3)
  1. EDOXABAN [Suspect]
     Active Substance: EDOXABAN TOSYLATE
     Indication: ANTIPLATELET THERAPY
     Dosage: 60 MG, QD
     Route: 048
  2. ACETYLSALICYLIC ACID [Suspect]
     Active Substance: ASPIRIN
     Indication: ANTIPLATELET THERAPY
     Dosage: 100 MG, QD
     Route: 048
  3. EDOXABAN [Suspect]
     Active Substance: EDOXABAN TOSYLATE
     Dosage: 30 MG, QD

REACTIONS (3)
  - Haematuria [Recovered/Resolved]
  - Incorrect dose administered [Unknown]
  - Product prescribing issue [Recovered/Resolved]
